FAERS Safety Report 6444001-0 (Version None)
Quarter: 2009Q4

REPORT INFORMATION
  Report Type: 
  Country: None (occurrence: None)
  Receive Date: 20091116
  Receipt Date: 20091116
  Transmission Date: 20100525
  Serious: Yes (Life-Threatening, Hospitalization)
  Sender: FDA-Public Use
  Company Number: None

PATIENT
  Age: 22 Year
  Sex: Female
  Weight: 95.2554 kg

DRUGS (2)
  1. YASMIN [Suspect]
     Indication: MENORRHAGIA
     Dosage: 1 TAB DAILY FOR 13 WKS CONTINUOUS PO
     Route: 048
     Dates: start: 20020605, end: 20091030
  2. YASMIN [Suspect]
     Indication: ORAL CONTRACEPTION
     Dosage: 1 TAB DAILY FOR 13 WKS CONTINUOUS PO
     Route: 048
     Dates: start: 20020605, end: 20091030

REACTIONS (4)
  - ABDOMINAL PAIN UPPER [None]
  - CHOLECYSTECTOMY [None]
  - NAUSEA [None]
  - VOMITING [None]
